FAERS Safety Report 20890817 (Version 3)
Quarter: 2022Q3

REPORT INFORMATION
  Report Type: Spontaneous
  Country: JP (occurrence: JP)
  Receive Date: 20220530
  Receipt Date: 20220823
  Transmission Date: 20221027
  Serious: Yes (Hospitalization)
  Sender: FDA-Public Use
  Company Number: JP-GLAXOSMITHKLINE-JP2022JPN084234

PATIENT

DRUGS (8)
  1. SOTROVIMAB [Suspect]
     Active Substance: SOTROVIMAB
     Indication: COVID-19
     Dosage: 500 MG/DAY, 500MG/100ML/30MIN
     Route: 064
     Dates: start: 20220212
  2. DEXTROMETHORPHAN HYDROBROMIDE [Suspect]
     Active Substance: DEXTROMETHORPHAN HYDROBROMIDE
     Indication: Cough
     Dosage: 45 MG/DAY
     Route: 064
     Dates: start: 20220213, end: 20220221
  3. TRANEXAMIC ACID [Suspect]
     Active Substance: TRANEXAMIC ACID
     Indication: Oropharyngeal pain
     Dosage: 1500 MG/DAY
     Route: 064
     Dates: start: 20220214, end: 20220219
  4. FERROUS CITRATE [Suspect]
     Active Substance: FERROUS CITRATE
     Indication: Anaemia
     Dosage: 100 MG/DAY
     Route: 064
     Dates: start: 20220225, end: 20220310
  5. MAGNESIUM OXIDE [Suspect]
     Active Substance: MAGNESIUM OXIDE
     Indication: Constipation
     Dosage: 990 MG/DAY
     Route: 064
     Dates: start: 20220225
  6. MENATETRENONE [Concomitant]
     Active Substance: MENATETRENONE
     Indication: Vitamin K deficiency
     Dosage: 1 MG
     Route: 042
     Dates: start: 20220322, end: 20220322
  7. KAYTWO SYRUP [Concomitant]
     Indication: Vitamin K deficiency
     Dosage: 1 MG
     Dates: start: 20220327
  8. DEXTROSE [Concomitant]
     Active Substance: DEXTROSE
     Dosage: UNK
     Route: 042
     Dates: start: 20220322, end: 20220325

REACTIONS (3)
  - Tachypnoea [Unknown]
  - Infection [Unknown]
  - Foetal exposure during pregnancy [Unknown]

NARRATIVE: CASE EVENT DATE: 20220322
